FAERS Safety Report 9799473 (Version 1)
Quarter: 2013Q4

REPORT INFORMATION
  Report Type: Spontaneous
  Country: US (occurrence: None)
  Receive Date: 20131231
  Receipt Date: 20131231
  Transmission Date: 20140711
  Serious: Yes (Hospitalization)
  Sender: FDA-Public Use
  Company Number: 2099792

PATIENT
  Age: 69 Year
  Sex: Female
  Weight: 59.87 kg

DRUGS (18)
  1. VINCRISTINE SULPHATE [Suspect]
     Indication: CHRONIC LYMPHOCYTIC LEUKAEMIA
     Route: 042
     Dates: start: 20130904, end: 20131004
  2. RITUXIMAB [Suspect]
     Indication: CHRONIC LYMPHOCYTIC LEUKAEMIA
     Dosage: 850 REDUCED TO 835 UCM, 1 DAY EACH
     Dates: start: 20131018, end: 20131118
  3. FLUDARA [Suspect]
     Dates: start: 20131016, end: 20131120
  4. FLUOXETINE [Concomitant]
  5. SUCRALFATE [Concomitant]
  6. NEXIUM [Concomitant]
  7. PREMARIN [Concomitant]
  8. ARICEPT [Concomitant]
  9. CLOBETASOL [Concomitant]
  10. DILTIAZEM [Concomitant]
  11. ECOTRIN [Concomitant]
  12. IMODIUM [Concomitant]
  13. LIPITOR [Concomitant]
  14. LISINOPRIL [Concomitant]
  15. HYDROCHLOROTHIAZIDE [Concomitant]
  16. NITROSTAT [Concomitant]
  17. ZOFRAN [Concomitant]
  18. VALTREX [Concomitant]

REACTIONS (3)
  - Febrile neutropenia [None]
  - Herpes simplex [None]
  - Viral infection [None]
